FAERS Safety Report 7449459-6 (Version None)
Quarter: 2011Q2

REPORT INFORMATION
  Report Type: 
  Country: None (occurrence: None)
  Receive Date: 20110502
  Receipt Date: 20100111
  Transmission Date: 20111010
  Serious: No
  Sender: FDA-Public Use
  Company Number: 2010BI001279

PATIENT
  Sex: Female

DRUGS (2)
  1. TYSABRI [Suspect]
     Indication: MULTIPLE SCLEROSIS
     Route: 042
     Dates: start: 20090817, end: 20100203
  2. PROZAC [Concomitant]
     Indication: DEPRESSION

REACTIONS (14)
  - MIGRAINE [None]
  - FATIGUE [None]
  - INSOMNIA [None]
  - ASTHENIA [None]
  - OEDEMA PERIPHERAL [None]
  - MULTIPLE SCLEROSIS RELAPSE [None]
  - HYPOAESTHESIA [None]
  - GAIT DISTURBANCE [None]
  - DRUG INEFFECTIVE [None]
  - DEPRESSION [None]
  - ANXIETY [None]
  - DYSPHAGIA [None]
  - MEMORY IMPAIRMENT [None]
  - SPEECH DISORDER [None]
